FAERS Safety Report 6383034-X (Version None)
Quarter: 2009Q3

REPORT INFORMATION
  Report Type: 
  Country: None (occurrence: None)
  Receive Date: 20090930
  Receipt Date: 20090921
  Transmission Date: 20100115
  Serious: Yes (Other)
  Sender: FDA-Public Use
  Company Number: US-AMGEN-QUU365653

PATIENT
  Sex: Male

DRUGS (1)
  1. ENBREL [Suspect]
     Indication: ANKYLOSING SPONDYLITIS
     Dates: start: 20010401

REACTIONS (5)
  - DIABETES MELLITUS [None]
  - FATIGUE [None]
  - FOOT FRACTURE [None]
  - LOOSE TOOTH [None]
  - VITAMIN D DECREASED [None]
